FAERS Safety Report 7437869-2 (Version None)
Quarter: 2011Q2

REPORT INFORMATION
  Report Type: 
  Country: None (occurrence: None)
  Receive Date: 20110426
  Receipt Date: 20110418
  Transmission Date: 20111010
  Serious: Yes (Disabling)
  Sender: FDA-Public Use
  Company Number: A0924110A

PATIENT
  Sex: Female

DRUGS (3)
  1. IMMUNE GLOBULIN INTRAVENOUS (HUMAN) [Concomitant]
  2. CORTICOSTEROIDS [Concomitant]
  3. PROMACTA [Suspect]
     Indication: IDIOPATHIC THROMBOCYTOPENIC PURPURA
     Dosage: 50MG PER DAY
     Dates: start: 20100501, end: 20100701

REACTIONS (4)
  - VISION BLURRED [None]
  - SWELLING FACE [None]
  - RETINAL VEIN THROMBOSIS [None]
  - BLINDNESS UNILATERAL [None]
